FAERS Safety Report 5209900-6 (Version None)
Quarter: 2006Q4

REPORT INFORMATION
  Report Type: 
  Country: None (occurrence: None)
  Receive Date: 20061130
  Receipt Date: 20060203
  Transmission Date: 20070319
  Serious: Yes (Other)
  Sender: FDA-Public Use
  Company Number: 2005170598

PATIENT
  Age: 55 Year
  Sex: Male

DRUGS (1)
  1. ZYVOX [Suspect]
     Indication: OSTEOMYELITIS
     Dosage: 1200 MG (600 MG, 2 IN 1 D), INTRAVENOUS
     Route: 042

REACTIONS (1)
  - THROMBOCYTOPENIA [None]
